FAERS Safety Report 18372913 (Version 1)
Quarter: 2020Q4

REPORT INFORMATION
  Report Type: Spontaneous
  Country: NL (occurrence: NL)
  Receive Date: 20201012
  Receipt Date: 20201012
  Transmission Date: 20210114
  Serious: Yes (Hospitalization)
  Sender: FDA-Public Use
  Company Number: NL-PFIZER INC-2020388747

PATIENT
  Age: 78 Year
  Sex: Female
  Weight: 57 kg

DRUGS (8)
  1. ALENDRONIC ACID [Concomitant]
     Active Substance: ALENDRONIC ACID
     Dosage: 70 MG
  2. OMEPRAZOL [Concomitant]
     Active Substance: OMEPRAZOLE
     Dosage: 20 MG
  3. OXYCODON [Concomitant]
     Active Substance: OXYCODONE
     Dosage: 5 MG
  4. PREDNISOLON [PREDNISOLONE] [Concomitant]
     Active Substance: PREDNISOLONE
     Dosage: 30 MG
  5. SULFASALAZINE. [Suspect]
     Active Substance: SULFASALAZINE
     Indication: RHEUMATOID ARTHRITIS
     Dosage: 1000 MG, 2X/DAY (FREQ:12 H;BUILD-UP SCHEME. FROM WEEK 3 : 2X PER DAY 1000 MG (2 TABLETS))
     Dates: start: 20200819, end: 20200916
  6. OXYCODON [Concomitant]
     Active Substance: OXYCODONE
     Dosage: 10 MG
  7. FERROUS FUMARATE [Concomitant]
     Active Substance: FERROUS FUMARATE
     Dosage: 200 MG
  8. ACETYLSALICYLIC ACID/PARACETAMOL [Concomitant]
     Active Substance: ACETAMINOPHEN\ASPIRIN

REACTIONS (2)
  - Leukopenia [Recovered/Resolved]
  - Neutropenia [Recovering/Resolving]

NARRATIVE: CASE EVENT DATE: 20200916
